FAERS Safety Report 4652350-1 (Version None)
Quarter: 2005Q2

REPORT INFORMATION
  Report Type: 
  Country: None (occurrence: None)
  Receive Date: 20050504
  Receipt Date: 20050428
  Transmission Date: 20051028
  Serious: Yes (Disabling, Other)
  Sender: FDA-Public Use
  Company Number: GB-GLAXOSMITHKLINE-B0379623A

PATIENT

DRUGS (4)
  1. SALBUTAMOL [Suspect]
  2. PREDNISOLONE [Suspect]
     Indication: ASTHMA EXACERBATION PROPHYLAXIS
     Dosage: 40MG PER DAY
     Route: 048
     Dates: start: 20050418
  3. LAMOTRIGINE [Concomitant]
     Indication: PETIT MAL EPILEPSY
     Dosage: 50MG PER DAY
     Route: 065
     Dates: start: 20050401
  4. STEROID [Concomitant]
     Route: 055

REACTIONS (1)
  - CONVULSION [None]
